FAERS Safety Report 13970506 (Version 1)
Quarter: 2017Q3

REPORT INFORMATION
  Report Type: Spontaneous
  Country: JP (occurrence: JP)
  Receive Date: 20170914
  Receipt Date: 20170914
  Transmission Date: 20171128
  Serious: Yes (Hospitalization)
  Sender: FDA-Public Use
  Company Number: JP-ELI_LILLY_AND_COMPANY-JP201706005217

PATIENT
  Age: 80 Year
  Sex: Female
  Weight: 41 kg

DRUGS (10)
  1. NONTAS [Concomitant]
     Indication: BRONCHITIS CHRONIC
     Dosage: 15 MG, BID
     Route: 048
  2. NIZATIDINE. [Concomitant]
     Active Substance: NIZATIDINE
     Indication: CHRONIC GASTRITIS
     Dosage: 75 MG, BID
     Route: 048
  3. LYRICA [Concomitant]
     Active Substance: PREGABALIN
     Indication: SCIATICA
     Dosage: 50 MG, EACH EVENING
     Route: 048
  4. VALSARTAN + HIDROCLOROTIAZIDA [Concomitant]
     Active Substance: HYDROCHLOROTHIAZIDE\VALSARTAN
     Indication: HYPERTENSION
     Dosage: 1 DF, EACH MORNING
     Route: 048
  5. CLARITHROMYCIN. [Concomitant]
     Active Substance: CLARITHROMYCIN
     Indication: BRONCHITIS CHRONIC
     Dosage: 200 MG, BID
     Route: 048
  6. TERBINAFINE. [Concomitant]
     Active Substance: TERBINAFINE
     Dosage: 125 MG, EACH MORNING
     Route: 048
  7. DULOXETINE HYDROCHLORIDE. [Suspect]
     Active Substance: DULOXETINE HYDROCHLORIDE
     Indication: SCIATICA
     Dosage: 20 MG, DAILY
     Route: 048
     Dates: start: 20170412, end: 20170426
  8. LORATADINE. [Concomitant]
     Active Substance: LORATADINE
     Indication: BRONCHITIS CHRONIC
     Dosage: 10 MG, EACH EVENING
     Route: 048
  9. CELECOX [Concomitant]
     Active Substance: CELECOXIB
     Indication: SCIATICA
     Dosage: 100 MG, BID
     Route: 048
  10. SENNOSIDE                          /00571902/ [Concomitant]
     Active Substance: SENNOSIDES A AND B
     Indication: CONSTIPATION
     Dosage: 24 MG, PRN
     Route: 048

REACTIONS (5)
  - Inappropriate antidiuretic hormone secretion [Recovered/Resolved]
  - Osteoporosis [Not Recovered/Not Resolved]
  - Hyponatraemia [Recovered/Resolved]
  - Spinal compression fracture [Not Recovered/Not Resolved]
  - Off label use [Recovered/Resolved]

NARRATIVE: CASE EVENT DATE: 20170412
